FAERS Safety Report 4564478-5 (Version None)
Quarter: 2005Q1

REPORT INFORMATION
  Report Type: 
  Country: None (occurrence: None)
  Receive Date: 20050126
  Receipt Date: 20050118
  Transmission Date: 20050727
  Serious: Yes (Death)
  Sender: FDA-Public Use
  Company Number: F01200500105

PATIENT
  Age: 52 Year
  Sex: Male

DRUGS (2)
  1. OXALIPLATIN - SOLUTION - 130 MG/M2 [Suspect]
     Indication: RECTAL CANCER
     Dosage: 130 MG/M2 Q2W INTRAVENOUS NOS
     Route: 042
  2. CAPECITABINE - TABLET - 2000 MG/M2 [Suspect]
     Dosage: 1000 MG/M2 TWICE A DAY GIVEN ORALLY FOR 14 DAYS FOLLOWED BY 7 DAYS REST, Q3W ORAL
     Route: 048

REACTIONS (4)
  - ARRHYTHMIA [None]
  - CARDIAC ARREST [None]
  - CIRCULATORY COLLAPSE [None]
  - COMA [None]
